FAERS Safety Report 5190161-1 (Version None)
Quarter: 2006Q4

REPORT INFORMATION
  Report Type: 
  Country: None (occurrence: None)
  Receive Date: 20061222
  Receipt Date: 20060104
  Transmission Date: 20070319
  Serious: Yes (Death)
  Sender: FDA-Public Use
  Company Number: US-BAYER-200610046BWH

PATIENT
  Age: 72 Year
  Sex: Male
  Weight: 79 kg

DRUGS (11)
  1. SORAFENIB [Suspect]
     Indication: METASTATIC RENAL CELL CARCINOMA
     Dosage: TOTAL DAILY DOSE: 800 MG  UNIT DOSE: 200 MG
     Route: 048
     Dates: start: 20051116, end: 20051209
  2. SORAFENIB [Suspect]
     Dosage: TOTAL DAILY DOSE: 400 MG  UNIT DOSE: 200 MG
     Route: 048
     Dates: start: 20051212, end: 20051224
  3. NORVASC [Concomitant]
     Indication: HYPERTENSION
     Route: 048
  4. LIPITOR [Concomitant]
     Indication: HYPERLIPIDAEMIA
     Route: 048
  5. FOLTX [Concomitant]
  6. ASPIRIN [Concomitant]
     Route: 048
  7. OXYCONTIN [Concomitant]
     Indication: PAIN
     Dosage: TOTAL DAILY DOSE: 20 MG
     Route: 048
     Dates: start: 20051122
  8. PERCOCET [Concomitant]
     Indication: BREAKTHROUGH PAIN
     Route: 048
     Dates: start: 20051122
  9. LEVSIN [Concomitant]
     Indication: ANAL SPASM
     Dosage: TOTAL DAILY DOSE: 0.750 MG
     Route: 048
     Dates: start: 20051215
  10. MEGACE ES [Concomitant]
     Indication: ANOREXIA
     Route: 048
     Dates: start: 20051214
  11. HOSPICE COMFORT KIT [Concomitant]

REACTIONS (1)
  - RENAL CELL CARCINOMA STAGE UNSPECIFIED [None]
